FAERS Safety Report 7331962-0 (Version None)
Quarter: 2011Q1

REPORT INFORMATION
  Report Type: 
  Country: None (occurrence: None)
  Receive Date: 20110304
  Receipt Date: 20110228
  Transmission Date: 20110831
  Serious: Yes (Hospitalization)
  Sender: FDA-Public Use
  Company Number: DE-B.I. PHARMACEUTICALS,INC./RIDGEFIELD-2011-DE-01380DE

PATIENT
  Age: 64 Year
  Sex: Male
  Weight: 114 kg

DRUGS (1)
  1. PRADAXA [Suspect]
     Indication: ATRIAL FIBRILLATION
     Dosage: 150 MG
     Route: 048
     Dates: start: 20101215, end: 20110211

REACTIONS (2)
  - ANAPHYLACTIC REACTION [None]
  - CARDIAC ASTHMA [None]
